FAERS Safety Report 7397347-6 (Version None)
Quarter: 2011Q2

REPORT INFORMATION
  Report Type: 
  Country: None (occurrence: None)
  Receive Date: 20110406
  Receipt Date: 20110406
  Transmission Date: 20111010
  Serious: Yes (Death, Hospitalization)
  Sender: FDA-Public Use
  Company Number: PA-PFIZER INC-2007054711

PATIENT
  Age: 51 Year
  Sex: Male
  Weight: 67.8 kg

DRUGS (1)
  1. SUNITINIB MALATE [Suspect]
     Indication: RENAL CELL CARCINOMA
     Dosage: 50 MG, 1X/DAY
     Route: 048
     Dates: start: 20070420, end: 20070628

REACTIONS (3)
  - RENAL CELL CARCINOMA [None]
  - DISEASE PROGRESSION [None]
  - SEPSIS [None]
